FAERS Safety Report 7638599-4 (Version None)
Quarter: 2011Q3

REPORT INFORMATION
  Report Type: 
  Country: None (occurrence: None)
  Receive Date: 20110720
  Receipt Date: 20110712
  Transmission Date: 20111222
  Serious: Yes (Hospitalization)
  Sender: FDA-Public Use
  Company Number: 2011SP031450

PATIENT
  Age: 53 Year
  Sex: Female
  Weight: 61 kg

DRUGS (6)
  1. PHENYTOIN SODIUM [Concomitant]
  2. TEMODAL [Suspect]
     Indication: BRAIN NEOPLASM
     Dosage: 125 MG;QD;PO
     Route: 048
     Dates: start: 20110207, end: 20110317
  3. LANSOR [Concomitant]
  4. DEKORT [Concomitant]
  5. KORDEXA [Concomitant]
  6. ZOFER [Concomitant]

REACTIONS (5)
  - PYREXIA [None]
  - BLOOD URINE PRESENT [None]
  - SERUM FERRITIN INCREASED [None]
  - BONE MARROW FAILURE [None]
  - PANCYTOPENIA [None]
